FAERS Safety Report 4667463-8 (Version None)
Quarter: 2005Q2

REPORT INFORMATION
  Report Type: 
  Country: None (occurrence: None)
  Receive Date: 20050520
  Receipt Date: 20050511
  Transmission Date: 20051028
  Serious: Yes (Hospitalization)
  Sender: FDA-Public Use
  Company Number: JP-BOEHRINGER INGELHEIM PHARMACEUTICALS, INC.-2005-BP-08219NB

PATIENT

DRUGS (1)
  1. SPIRIVA [Suspect]
     Route: 055
     Dates: start: 20050510

REACTIONS (1)
  - PYREXIA [None]
